FAERS Safety Report 7399319-4 (Version None)
Quarter: 2011Q1

REPORT INFORMATION
  Report Type: 
  Country: None (occurrence: None)
  Receive Date: 20110328
  Receipt Date: 20110318
  Transmission Date: 20110831
  Serious: Yes (Other)
  Sender: FDA-Public Use
  Company Number: 001742

PATIENT
  Sex: Male
  Weight: 19.5 kg

DRUGS (3)
  1. KEPPRA [Concomitant]
  2. DEPAKENE [Concomitant]
  3. LACOSAMIDE [Suspect]
     Indication: EPILEPSY
     Dosage: 1 MG/KG, QD, ORAL; INCREASE AT THE RAGE OF 1MG/KG PER WEEK); 8 MG/KG, QD
     Route: 048
     Dates: start: 20090327, end: 20090921

REACTIONS (5)
  - APLASIA [None]
  - WHITE BLOOD CELL COUNT DECREASED [None]
  - NORMOCHROMIC NORMOCYTIC ANAEMIA [None]
  - GRANULOCYTOPENIA [None]
  - THROMBOCYTOPENIA [None]
